FAERS Safety Report 7051753-8 (Version None)
Quarter: 2010Q4

REPORT INFORMATION
  Report Type: 
  Country: None (occurrence: None)
  Receive Date: 20101019
  Receipt Date: 20101005
  Transmission Date: 20110411
  Serious: Yes (Other)
  Sender: FDA-Public Use
  Company Number: PHHY2010US66557

PATIENT
  Sex: Female

DRUGS (1)
  1. FEMARA [Suspect]
     Dosage: 2.5 MG, QD
     Route: 048
     Dates: end: 20100928

REACTIONS (3)
  - BONE NEOPLASM MALIGNANT [None]
  - GASTRIC CANCER [None]
  - HEPATIC NEOPLASM MALIGNANT [None]
